FAERS Safety Report 4809096-6 (Version None)
Quarter: 2005Q4

REPORT INFORMATION
  Report Type: 
  Country: None (occurrence: None)
  Receive Date: 20051021
  Receipt Date: 20050322
  Transmission Date: 20060501
  Serious: No
  Sender: FDA-Public Use
  Company Number: AU_050308471

PATIENT
  Sex: Female

DRUGS (2)
  1. ZYPREXA [Suspect]
     Indication: ANXIETY DISORDER
     Dosage: 2.5 MG/ONCE DAY
     Dates: start: 20030901
  2. ZOLOFT [Concomitant]

REACTIONS (1)
  - NEUTROPENIA [None]
